FAERS Safety Report 7246460-2 (Version None)
Quarter: 2011Q1

REPORT INFORMATION
  Report Type: 
  Country: None (occurrence: None)
  Receive Date: 20110126
  Receipt Date: 20110110
  Transmission Date: 20110831
  Serious: No
  Sender: FDA-Public Use
  Company Number: US-MYLANLABS-2010S1023004

PATIENT
  Age: 67 Year
  Sex: Male

DRUGS (4)
  1. VITAMIN TAB [Concomitant]
  2. ASPIRIN [Concomitant]
  3. TAMSULOSIN HCL [Suspect]
     Indication: BENIGN PROSTATIC HYPERPLASIA
     Route: 048
     Dates: start: 20100201, end: 20101210
  4. FISH OIL [Concomitant]

REACTIONS (2)
  - DRUG INEFFECTIVE [None]
  - BENIGN PROSTATIC HYPERPLASIA [None]
